FAERS Safety Report 7849972-3 (Version None)
Quarter: 2011Q4

REPORT INFORMATION
  Report Type: 
  Country: None (occurrence: None)
  Receive Date: 20111026
  Receipt Date: 20111013
  Transmission Date: 20120403
  Serious: Yes (Hospitalization, Other)
  Sender: FDA-Public Use
  Company Number: US-BAYER-201037651NA

PATIENT
  Age: 17 Year
  Sex: Female
  Weight: 79 kg

DRUGS (8)
  1. YAZ [Suspect]
  2. DROSPIRENONE AND ETHINYL ESTRADIOL [Suspect]
  3. YASMIN [Suspect]
     Dosage: UNK
     Dates: start: 20030922, end: 20040101
  4. VIOXX [Concomitant]
     Dosage: UNK UNK, QD
  5. NSAID'S [Concomitant]
     Indication: PAIN
  6. GLUCOFAGE [Concomitant]
     Dosage: UNK UNK, TID
  7. LORTAB [Concomitant]
     Indication: PAIN
  8. MIRALAX [Concomitant]

REACTIONS (15)
  - MENTAL DISORDER [None]
  - PAIN IN EXTREMITY [None]
  - HYPOAESTHESIA [None]
  - CHOLELITHIASIS [None]
  - DEEP VEIN THROMBOSIS [None]
  - PELVIC VENOUS THROMBOSIS [None]
  - BACK PAIN [None]
  - ANXIETY [None]
  - ANGER [None]
  - OEDEMA PERIPHERAL [None]
  - METABOLIC SYNDROME [None]
  - SLEEP DISORDER [None]
  - PARAESTHESIA [None]
  - DEPRESSION [None]
  - IRRITABILITY [None]
